FAERS Safety Report 13196733 (Version 3)
Quarter: 2017Q1

REPORT INFORMATION
  Report Type: Spontaneous
  Country: JP (occurrence: JP)
  Receive Date: 20170208
  Receipt Date: 20170302
  Transmission Date: 20170428
  Serious: Yes (Hospitalization)
  Sender: FDA-Public Use
  Company Number: JP-PFIZER INC-2017055232

PATIENT
  Age: 82 Year
  Sex: Female

DRUGS (2)
  1. LYRICA [Suspect]
     Active Substance: PREGABALIN
     Indication: PAIN
     Dosage: 100 MG, DAILY (25 MG AFTER BREAKFAST AND 75 MG AT BEDTIME)
     Route: 048
     Dates: start: 20161123, end: 20161228
  2. LYRICA [Suspect]
     Active Substance: PREGABALIN
     Dosage: 25MG IN THE MORNING, 75MG BEFORE SLEEP
     Route: 048
     Dates: start: 20170201, end: 20170206

REACTIONS (7)
  - Dehydration [Recovering/Resolving]
  - Sedation [Unknown]
  - Amylase increased [Recovering/Resolving]
  - Hypokalaemia [Recovering/Resolving]
  - Disease recurrence [Recovering/Resolving]
  - Malaise [Recovering/Resolving]
  - Hypercapnia [Not Recovered/Not Resolved]

NARRATIVE: CASE EVENT DATE: 20170201
